FAERS Safety Report 9397306 (Version 2)
Quarter: 2013Q3

REPORT INFORMATION
  Report Type: Spontaneous
  Country: US (occurrence: US)
  Receive Date: 20130712
  Receipt Date: 20130802
  Transmission Date: 20140515
  Serious: Yes (Hospitalization)
  Sender: FDA-Public Use
  Company Number: US-GENZYME-THYM-1003882

PATIENT
  Age: 24 Year
  Sex: Male
  Weight: 124 kg

DRUGS (12)
  1. THYMOGLOBULIN [Suspect]
     Indication: LIVER TRANSPLANT REJECTION
     Dosage: 200 MG, 5X/W (DAYS 1,2,3,5,7)
     Route: 042
     Dates: start: 20130620, end: 20130627
  2. BACTRIUM DS [Concomitant]
     Indication: PRODUCT USED FOR UNKNOWN INDICATION
     Dosage: 960 MG (160 MG-800 MG), UNK
     Route: 048
  3. LOPRESSOR [Concomitant]
     Indication: PRODUCT USED FOR UNKNOWN INDICATION
     Dosage: 25 MG, BID
     Route: 048
  4. PRILOSEC [Concomitant]
     Indication: PRODUCT USED FOR UNKNOWN INDICATION
     Dosage: 40 MG, QD
     Route: 048
  5. CELLCEPT [Concomitant]
     Indication: TRANSPLANT REJECTION
     Dosage: (500 MG TABLET, 2 TABLETS, TWO TIMES A DAY)
     Route: 048
  6. PREDNISONE [Concomitant]
     Indication: PRODUCT USED FOR UNKNOWN INDICATION
     Dosage: 10 MG, QD
     Route: 048
  7. PROGRAF [Concomitant]
     Indication: TRANSPLANT REJECTION
     Dosage: (1 MG CAPSULE,6 CAPSULES EVERY 12 HOURS)
     Route: 048
  8. VALCYTE [Concomitant]
     Indication: PRODUCT USED FOR UNKNOWN INDICATION
     Dosage: (450 MG TABLET, 2 TABLETS DAILY)
     Route: 048
  9. CORTICOSTEROID NOS [Concomitant]
     Indication: PREMEDICATION
     Dosage: UNK
     Route: 065
  10. TYLENOL [Concomitant]
     Indication: PREMEDICATION
     Dosage: UNK
     Route: 065
  11. BENADRYL [Concomitant]
     Indication: PREMEDICATION
     Dosage: UNK
     Route: 065
  12. BOWEL DECONTAMINATION [Concomitant]
     Indication: PRODUCT USED FOR UNKNOWN INDICATION
     Dosage: UNK
     Route: 048

REACTIONS (3)
  - Palmar-plantar erythrodysaesthesia syndrome [Recovered/Resolved]
  - Erythema [Recovered/Resolved]
  - Pain [Recovered/Resolved]
